FAERS Safety Report 13977717 (Version 1)
Quarter: 2017Q3

REPORT INFORMATION
  Report Type: Spontaneous
  Country: US (occurrence: US)
  Receive Date: 20170915
  Receipt Date: 20170915
  Transmission Date: 20171128
  Serious: No
  Sender: FDA-Public Use
  Company Number: None

PATIENT
  Age: 49 Year
  Sex: Female
  Weight: 92.7 kg

DRUGS (5)
  1. MULTI VITAMIN (THE MANE CHOICE) [Concomitant]
  2. ADVIL [Concomitant]
     Active Substance: IBUPROFEN
  3. MIRENA [Concomitant]
     Active Substance: LEVONORGESTREL
  4. ZYRTEC [Concomitant]
     Active Substance: CETIRIZINE HYDROCHLORIDE
  5. SPIRONOLACTONE. [Suspect]
     Active Substance: SPIRONOLACTONE
     Indication: ACNE
     Dosage: ?          QUANTITY:1 TABLET(S);?YWICE A DAY ORAL
     Route: 048
     Dates: start: 20170113, end: 20170806

REACTIONS (1)
  - Alopecia [None]

NARRATIVE: CASE EVENT DATE: 20170804
